FAERS Safety Report 12076201 (Version 2)
Quarter: 2016Q1

REPORT INFORMATION
  Report Type: Spontaneous
  Country: EG (occurrence: EG)
  Receive Date: 20160215
  Receipt Date: 20160217
  Transmission Date: 20160526
  Serious: Yes (Disabling, Other)
  Sender: FDA-Public Use
  Company Number: EG-ROCHE-1708314

PATIENT
  Age: 61 Year
  Sex: Female

DRUGS (1)
  1. AVASTIN [Suspect]
     Active Substance: BEVACIZUMAB
     Indication: PRODUCT USED FOR UNKNOWN INDICATION
     Dosage: EYE INJECTION
     Route: 065

REACTIONS (8)
  - Blindness [Not Recovered/Not Resolved]
  - Eye irritation [Unknown]
  - Eye infection [Not Recovered/Not Resolved]
  - Swelling face [Not Recovered/Not Resolved]
  - Suspected transmission of an infectious agent via product [Unknown]
  - Headache [Unknown]
  - Eye haemorrhage [Not Recovered/Not Resolved]
  - Off label use [Unknown]
